FAERS Safety Report 6748205-9 (Version None)
Quarter: 2010Q2

REPORT INFORMATION
  Report Type: 
  Country: None (occurrence: None)
  Receive Date: 20100601
  Receipt Date: 20100517
  Transmission Date: 20101027
  Serious: Yes (Other)
  Sender: FDA-Public Use
  Company Number: US-ASTRAZENECA-2010SE24729

PATIENT
  Sex: Male

DRUGS (21)
  1. SEROQUEL [Suspect]
     Route: 048
     Dates: start: 20030103
  2. LOPRESSOR [Concomitant]
     Dosage: 100-200 MG
     Dates: start: 20060213
  3. DIOVAN [Concomitant]
     Dates: start: 20030116
  4. GLUCOPHAGE [Concomitant]
     Dates: start: 20060213
  5. LOPID [Concomitant]
     Dates: start: 20060213
  6. CARDIZEM CD [Concomitant]
     Dates: start: 20060308
  7. THIAMINE HYDROCHLORIDE [Concomitant]
     Indication: PAIN
     Dosage: 1 TID FOR 1 MONTH
     Dates: start: 20060803
  8. VASOTEC [Concomitant]
     Dates: start: 20060504
  9. BENZTROPINE MES [Concomitant]
     Dates: start: 20030103
  10. HALOPERIDOL [Concomitant]
     Dates: start: 20030103
  11. LIPITOR [Concomitant]
     Dates: start: 20030116
  12. TOPROL-XL [Concomitant]
     Dates: start: 20030120
  13. DIOVAN HCT [Concomitant]
     Dosage: 160-12
     Dates: start: 20030623
  14. CLONAZEPAM [Concomitant]
     Dates: start: 20031020
  15. BENICAR HCT [Concomitant]
     Dosage: 20-12
     Dates: start: 20040216
  16. RISPERDAL [Concomitant]
     Dates: start: 20040226
  17. DEPAKOTE [Concomitant]
     Dates: start: 20040226
  18. TRIAMTERENE AND HYDROCHLOROTHIAZIDE [Concomitant]
     Dates: start: 20040422
  19. NORVASC [Concomitant]
     Dates: start: 20040709
  20. PLAVIX [Concomitant]
     Dates: start: 20040709
  21. FUROSEMIDE [Concomitant]
     Dates: start: 20040831

REACTIONS (3)
  - DIABETES MELLITUS INADEQUATE CONTROL [None]
  - DIABETIC NEUROPATHY [None]
  - HYPERTENSION [None]
